FAERS Safety Report 19258255 (Version 1)
Quarter: 2021Q2

REPORT INFORMATION
  Report Type: Spontaneous
  Country: US (occurrence: US)
  Receive Date: 20210514
  Receipt Date: 20210514
  Transmission Date: 20210717
  Serious: Yes (Hospitalization, Other)
  Sender: FDA-Public Use
  Company Number: US-GLAXOSMITHKLINE-US2021GSK097297

PATIENT
  Age: 50 Year
  Sex: Male

DRUGS (9)
  1. COCAINE [Suspect]
     Active Substance: COCAINE
     Indication: PRODUCT USED FOR UNKNOWN INDICATION
     Dosage: UNK
  2. METFORMIN [Concomitant]
     Active Substance: METFORMIN HYDROCHLORIDE
     Indication: TYPE 2 DIABETES MELLITUS
     Dosage: UNK
  3. CARVEDILOL. [Suspect]
     Active Substance: CARVEDILOL
     Indication: HYPERTENSION
     Dosage: UNK
  4. AMLODIPINE [Suspect]
     Active Substance: AMLODIPINE BESYLATE
     Indication: HYPERTENSION
     Dosage: UNK
  5. FUROSEMIDE. [Concomitant]
     Active Substance: FUROSEMIDE
     Indication: DIURETIC THERAPY
     Dosage: UNK
  6. ATORVASTATIN [Concomitant]
     Active Substance: ATORVASTATIN
     Indication: HYPERLIPIDAEMIA
     Dosage: UNK
  7. GABAPENTIN. [Concomitant]
     Active Substance: GABAPENTIN
     Indication: NEURALGIA
     Dosage: UNK
  8. CARVEDILOL. [Suspect]
     Active Substance: CARVEDILOL
     Indication: HYPERTENSIVE EMERGENCY
  9. AMITRIPTYLINE [Concomitant]
     Active Substance: AMITRIPTYLINE
     Indication: ANTIDEPRESSANT THERAPY
     Dosage: UNK

REACTIONS (14)
  - Hypertensive emergency [Recovered/Resolved]
  - Dyspnoea [Unknown]
  - Hypertensive crisis [Recovered/Resolved]
  - Rash maculo-papular [Unknown]
  - Thrombocytopenia [Recovered/Resolved]
  - Musculoskeletal chest pain [Unknown]
  - Rash pruritic [Unknown]
  - Malignant hypertension [Recovered/Resolved]
  - Treatment noncompliance [Unknown]
  - Haemolytic anaemia [Unknown]
  - Anaemia [Unknown]
  - Renal impairment [Not Recovered/Not Resolved]
  - Thrombotic microangiopathy [Unknown]
  - Chest pain [Recovered/Resolved]
